FAERS Safety Report 8950750 (Version 1)
Quarter: 2012Q4

REPORT INFORMATION
  Report Type: 
  Country: DE (occurrence: DE)
  Receive Date: 20121206
  Receipt Date: 20121206
  Transmission Date: 20130627
  Serious: Yes (Hospitalization, Disabling, Congenital Anomaly, Other)
  Sender: FDA-Public Use
  Company Number: DE-MYLANLABS-2012S1024912

PATIENT
  Age: 27 Year
  Sex: Female
  Weight: 98 kg

DRUGS (3)
  1. LAMOTRIGINE [Suspect]
     Indication: EPILEPSY
     Dosage: 200 [mg/d ]
     Route: 048
  2. HUMALOG [Concomitant]
     Indication: GESTATIONAL DIABETES
     Route: 058
     Dates: start: 20120515, end: 20120624
  3. FOLSAN [Concomitant]
     Indication: PROPHYLAXIS OF NEURAL TUBE DEFECT
     Route: 064

REACTIONS (4)
  - Exposure during pregnancy [Recovered/Resolved]
  - Gestational diabetes [Unknown]
  - Pre-eclampsia [Unknown]
  - Polyhydramnios [Unknown]
